FAERS Safety Report 25011586 (Version 1)
Quarter: 2025Q1

REPORT INFORMATION
  Report Type: Spontaneous
  Country: CN (occurrence: CN)
  Receive Date: 20250226
  Receipt Date: 20250226
  Transmission Date: 20250409
  Serious: Yes (Life-Threatening, Hospitalization, Other)
  Sender: JOHNSON AND JOHNSON
  Company Number: CN-BAYER-2025A025779

PATIENT
  Age: 82 Year
  Sex: Male
  Weight: 45.8 kg

DRUGS (1)
  1. XARELTO [Suspect]
     Active Substance: RIVAROXABAN
     Indication: Thrombosis prophylaxis
     Dosage: 1 DF, QD
     Route: 048
     Dates: start: 20241010, end: 20241114

REACTIONS (12)
  - Subdural haematoma [Recovering/Resolving]
  - Anal incontinence [Recovered/Resolved]
  - Urinary incontinence [Recovered/Resolved]
  - Brain herniation [Recovering/Resolving]
  - Muscular weakness [Recovering/Resolving]
  - Subdural haemorrhage [Unknown]
  - Inappropriate schedule of product administration [Unknown]
  - Product prescribing issue [Unknown]
  - Skin swelling [Recovering/Resolving]
  - Gait disturbance [Unknown]
  - Incision site pain [Unknown]
  - Intracranial calcification [Unknown]

NARRATIVE: CASE EVENT DATE: 20241010
